FAERS Safety Report 20159207 (Version 1)
Quarter: 2021Q4

REPORT INFORMATION
  Report Type: Spontaneous
  Country: US (occurrence: US)
  Receive Date: 20211208
  Receipt Date: 20211208
  Transmission Date: 20220304
  Serious: Yes (Hospitalization)
  Sender: FDA-Public Use
  Company Number: US-ALKEM LABORATORIES LIMITED-US-ALKEM-2021-03691

PATIENT
  Age: 56 Year
  Sex: Male

DRUGS (3)
  1. OLANZAPINE [Suspect]
     Active Substance: OLANZAPINE
     Indication: Insomnia
     Dosage: 5 MILLIGRAM, QD
     Route: 060
  2. OLANZAPINE [Suspect]
     Active Substance: OLANZAPINE
     Indication: Delirium
     Dosage: 10 MILLIGRAM, QD (DAY 34)
     Route: 065
  3. OLANZAPINE [Suspect]
     Active Substance: OLANZAPINE
     Dosage: 15 MILLIGRAM, QD (DAY 45)
     Route: 065

REACTIONS (4)
  - Chorea [Recovered/Resolved]
  - Akathisia [Recovered/Resolved]
  - Dyskinesia [Recovered/Resolved]
  - Drug ineffective [Unknown]
